FAERS Safety Report 18844345 (Version 1)
Quarter: 2021Q1

REPORT INFORMATION
  Report Type: Report from Study
  Country: US (occurrence: US)
  Receive Date: 20210203
  Receipt Date: 20210203
  Transmission Date: 20210419
  Serious: No
  Sender: FDA-Public Use
  Company Number: US-EXELIXIS-CABO-20029452

PATIENT
  Sex: Male

DRUGS (2)
  1. CABOMETYX [Suspect]
     Active Substance: CABOZANTINIB S-MALATE
     Dosage: 60 MG, QD
  2. CABOMETYX [Suspect]
     Active Substance: CABOZANTINIB S-MALATE
     Indication: RENAL CELL CARCINOMA
     Dosage: 60 MG, QD
     Dates: start: 20200408

REACTIONS (13)
  - Hepatic enzyme increased [Unknown]
  - Malignant neoplasm progression [Unknown]
  - Insomnia [Unknown]
  - Glossodynia [Not Recovered/Not Resolved]
  - Blood creatinine increased [Recovering/Resolving]
  - Headache [Recovered/Resolved]
  - Influenza like illness [Unknown]
  - Dry mouth [Not Recovered/Not Resolved]
  - Blood pressure increased [Recovering/Resolving]
  - Diarrhoea [Recovering/Resolving]
  - Taste disorder [Not Recovered/Not Resolved]
  - Nausea [Recovering/Resolving]
  - Oral pain [Not Recovered/Not Resolved]
